FAERS Safety Report 10779754 (Version 1)
Quarter: 2015Q1

REPORT INFORMATION
  Report Type: Spontaneous
  Country: US (occurrence: US)
  Receive Date: 20150210
  Receipt Date: 20150210
  Transmission Date: 20150721
  Serious: No
  Sender: FDA-Public Use
  Company Number: US-GLAXOSMITHKLINE-A1019979A

PATIENT

DRUGS (1)
  1. GAVISCON EXTRA STRENGTH [Suspect]
     Active Substance: ALUMINUM HYDROXIDE\MAGNESIUM CARBONATE
     Indication: DYSPEPSIA
     Route: 048
     Dates: start: 20130411, end: 20130411

REACTIONS (7)
  - Abdominal discomfort [Recovered/Resolved]
  - Diarrhoea [Recovered/Resolved]
  - Abdominal pain upper [Recovered/Resolved]
  - Gastrointestinal sounds abnormal [Recovered/Resolved]
  - Hypersensitivity [Recovered/Resolved]
  - Reaction to drug excipients [Recovered/Resolved]
  - Flatulence [Recovered/Resolved]
